FAERS Safety Report 11334039 (Version 1)
Quarter: 2015Q3

REPORT INFORMATION
  Report Type: Spontaneous
  Country: US (occurrence: US)
  Receive Date: 20150803
  Receipt Date: 20150803
  Transmission Date: 20151125
  Serious: Yes (Other)
  Sender: FDA-Public Use
  Company Number: US-SA-2015SA013780

PATIENT
  Age: 14 Year
  Sex: Female

DRUGS (4)
  1. ASA [Suspect]
     Active Substance: ASPIRIN
     Indication: SUICIDE ATTEMPT
     Route: 048
     Dates: start: 20060226
  2. FLEXERIL [Suspect]
     Active Substance: CYCLOBENZAPRINE HYDROCHLORIDE
     Indication: SUICIDE ATTEMPT
     Route: 048
     Dates: start: 20060226, end: 20060226
  3. APAP [Suspect]
     Active Substance: ACETAMINOPHEN
     Indication: SUICIDE ATTEMPT
     Route: 048
     Dates: start: 20060226, end: 20060226
  4. AMBIEN [Suspect]
     Active Substance: ZOLPIDEM TARTRATE
     Indication: SUICIDE ATTEMPT
     Route: 048
     Dates: start: 20060226

REACTIONS (3)
  - Vomiting [Recovered/Resolved]
  - Intentional overdose [Unknown]
  - Somnolence [Not Recovered/Not Resolved]

NARRATIVE: CASE EVENT DATE: 20060226
